FAERS Safety Report 5050143-7 (Version None)
Quarter: 2006Q3

REPORT INFORMATION
  Report Type: 
  Country: None (occurrence: None)
  Receive Date: 20060706
  Receipt Date: 20060623
  Transmission Date: 20061208
  Serious: Yes (Hospitalization, Other)
  Sender: FDA-Public Use
  Company Number: 2006079948

PATIENT
  Age: 50 Year
  Sex: Female
  Weight: 108.4097 kg

DRUGS (2)
  1. BEXTRA [Suspect]
     Indication: ARTHRITIS
     Dosage: (1 IN 1 D)
     Dates: start: 20020901, end: 20041201
  2. BEXTRA [Suspect]
     Indication: CARPAL TUNNEL SYNDROME
     Dosage: (1 IN 1 D)
     Dates: start: 20020901, end: 20041201

REACTIONS (5)
  - AMNESIA [None]
  - ANXIETY [None]
  - CARDIAC DISORDER [None]
  - CEREBROVASCULAR ACCIDENT [None]
  - VISUAL ACUITY REDUCED [None]
